FAERS Safety Report 14977628 (Version 1)
Quarter: 2018Q2

REPORT INFORMATION
  Report Type: Spontaneous
  Country: US (occurrence: US)
  Receive Date: 20180606
  Receipt Date: 20180606
  Transmission Date: 20180711
  Serious: No
  Sender: FDA-Public Use
  Company Number: US-TEVA-774891ACC

PATIENT
  Sex: Female

DRUGS (3)
  1. LOSARTAN. [Concomitant]
     Active Substance: LOSARTAN
  2. JUNEL [Suspect]
     Active Substance: ETHINYL ESTRADIOL\NORETHINDRONE ACETATE
     Dosage: 1/20 TABLET,  START DATE: 22-MAY- STOP DATE: 26-MAY-
     Route: 065
     Dates: start: 20170522, end: 20170526
  3. MICROGESTIN FE 1/20 [Concomitant]
     Active Substance: ETHINYL ESTRADIOL\NORETHINDRONE ACETATE

REACTIONS (9)
  - Breast pain [Recovered/Resolved]
  - Insomnia [Recovered/Resolved]
  - Breast tenderness [Recovered/Resolved]
  - Gait disturbance [Recovered/Resolved]
  - Malaise [Recovered/Resolved]
  - Alopecia [Recovered/Resolved]
  - Muscle spasms [Recovered/Resolved]
  - Mood altered [Recovered/Resolved]
  - Pain [Recovered/Resolved]
